FAERS Safety Report 25299726 (Version 1)
Quarter: 2025Q2

REPORT INFORMATION
  Report Type: Spontaneous
  Country: US (occurrence: US)
  Receive Date: 20250512
  Receipt Date: 20250512
  Transmission Date: 20250716
  Serious: Yes (Other)
  Sender: AUROBINDO
  Company Number: US-AUROBINDO-AUR-APL-2025-023891

PATIENT
  Age: 35 Year
  Sex: Female

DRUGS (1)
  1. BUPROPION HYDROCHLORIDE [Suspect]
     Active Substance: BUPROPION HYDROCHLORIDE
     Indication: Product used for unknown indication
     Route: 065

REACTIONS (7)
  - Brain stem syndrome [Unknown]
  - Cardiogenic shock [Unknown]
  - Intestinal pseudo-obstruction [Unknown]
  - Pupil fixed [Unknown]
  - Seizure [Unknown]
  - Ventricular tachycardia [Recovered/Resolved]
  - Intentional overdose [Unknown]
